FAERS Safety Report 4737341-4 (Version None)
Quarter: 2005Q3

REPORT INFORMATION
  Report Type: 
  Country: None (occurrence: None)
  Receive Date: 20050805
  Receipt Date: 20050726
  Transmission Date: 20060218
  Serious: Yes (Hospitalization)
  Sender: FDA-Public Use
  Company Number: 2005107256

PATIENT
  Sex: Female

DRUGS (2)
  1. LINEZOLID TABLET (LINEZOLID) [Suspect]
     Indication: ILL-DEFINED DISORDER
     Dosage: ORAL
     Route: 048
  2. PAXIL [Suspect]
     Indication: ILL-DEFINED DISORDER

REACTIONS (2)
  - ANAPHYLACTIC REACTION [None]
  - DRUG INTERACTION [None]
